FAERS Safety Report 18194653 (Version 2)
Quarter: 2020Q4

REPORT INFORMATION
  Report Type: Spontaneous
  Country: US (occurrence: US)
  Receive Date: 20200825
  Receipt Date: 20201028
  Transmission Date: 20210113
  Serious: No
  Sender: FDA-Public Use
  Company Number: US-LEXICON PHARMACEUTICALS, INC-20-1606-00663

PATIENT
  Age: 70 Year
  Sex: Female

DRUGS (4)
  1. LANREOTIDE [Concomitant]
     Active Substance: LANREOTIDE
  2. XERMELO [Suspect]
     Active Substance: TELOTRISTAT ETHYL
     Indication: CARCINOID SYNDROME
     Dates: start: 20200623
  3. LOMOTIL [Concomitant]
     Active Substance: ATROPINE SULFATE\DIPHENOXYLATE HYDROCHLORIDE
     Dosage: AS NEEDED
  4. IMODIUM [Concomitant]
     Active Substance: LOPERAMIDE HYDROCHLORIDE
     Dosage: AS NEEDED

REACTIONS (1)
  - Therapeutic product effect variable [Unknown]
